FAERS Safety Report 5171331-5 (Version None)
Quarter: 2006Q4

REPORT INFORMATION
  Report Type: 
  Country: None (occurrence: None)
  Receive Date: 20061213
  Receipt Date: 20060206
  Transmission Date: 20070319
  Serious: Yes (Hospitalization)
  Sender: FDA-Public Use
  Company Number: US-AMGEN-US167800

PATIENT
  Sex: Male

DRUGS (6)
  1. ENBREL [Suspect]
     Indication: RHEUMATOID ARTHRITIS
     Route: 058
     Dates: start: 20040729, end: 20060202
  2. LORTAB [Concomitant]
  3. METHOTREXATE [Concomitant]
     Dates: start: 20030201
  4. FOLIC ACID [Concomitant]
  5. CELEBREX [Concomitant]
  6. PEPCID [Concomitant]

REACTIONS (2)
  - CEREBROVASCULAR ACCIDENT [None]
  - LEUKOPENIA [None]
